FAERS Safety Report 10024927 (Version 2)
Quarter: 2014Q2

REPORT INFORMATION
  Report Type: Spontaneous
  Country: US (occurrence: US)
  Receive Date: 20140320
  Receipt Date: 20140416
  Transmission Date: 20141212
  Serious: Yes (Other)
  Sender: FDA-Public Use
  Company Number: US-SA-2014SA030623

PATIENT
  Age: 64 Year
  Sex: Female

DRUGS (4)
  1. LANTUS SOLOSTAR [Suspect]
     Indication: TYPE 2 DIABETES MELLITUS
     Route: 058
  2. AZITHROMYCIN [Suspect]
     Indication: PRODUCT USED FOR UNKNOWN INDICATION
     Route: 065
  3. SOLOSTAR [Concomitant]
     Indication: DEVICE THERAPY
  4. INSULIN [Concomitant]

REACTIONS (10)
  - Hypotension [Unknown]
  - Nausea [Unknown]
  - Heart rate increased [Unknown]
  - Somnolence [Unknown]
  - Vomiting [Unknown]
  - Fear of death [Unknown]
  - Ocular hyperaemia [Unknown]
  - Fatigue [Unknown]
  - Pruritus [Unknown]
  - Generalised erythema [Unknown]
